FAERS Safety Report 9771366 (Version 3)
Quarter: 2014Q3

REPORT INFORMATION
  Report Type: Spontaneous
  Country: DK (occurrence: DK)
  Receive Date: 20131218
  Receipt Date: 20140915
  Transmission Date: 20150326
  Serious: Yes (Disabling)
  Sender: FDA-Public Use
  Company Number: DK-GE HEALTHCARE MEDICAL DIAGNOSTICS-OSCN-NO-0901S-0030

PATIENT
  Age: 53 Year
  Sex: Male
  Weight: 85 kg

DRUGS (13)
  1. MAGNEVIST [Concomitant]
     Active Substance: GADOPENTETATE DIMEGLUMINE
     Dates: start: 20060906, end: 20060906
  2. DIURAL [Concomitant]
     Active Substance: FUROSEMIDE
  3. VENOFER [Concomitant]
     Active Substance: IRON SUCROSE
  4. LOMIR [Concomitant]
  5. APURIN [Concomitant]
     Active Substance: ALLOPURINOL
  6. LESCOL [Concomitant]
     Active Substance: FLUVASTATIN SODIUM
  7. SANDIMMUNE [Concomitant]
     Active Substance: CYCLOSPORINE
  8. OMNISCAN [Suspect]
     Active Substance: GADODIAMIDE
     Indication: PRODUCT USED FOR UNKNOWN INDICATION
     Route: 042
     Dates: start: 20051114, end: 20051114
  9. PREDNISOLONE. [Concomitant]
     Active Substance: PREDNISOLONE
  10. PHOS-EX [Concomitant]
  11. ETALPHA [Concomitant]
     Active Substance: ALFACALCIDOL
  12. METOPROLOL TARTRATE. [Concomitant]
     Active Substance: METOPROLOL TARTRATE
  13. EPREX [Concomitant]
     Active Substance: ERYTHROPOIETIN

REACTIONS (18)
  - Dyspnoea [Not Recovered/Not Resolved]
  - Oedema peripheral [Not Recovered/Not Resolved]
  - Pruritus [Not Recovered/Not Resolved]
  - Gait disturbance [Not Recovered/Not Resolved]
  - Nephrogenic systemic fibrosis [Not Recovered/Not Resolved]
  - Poor quality sleep [Not Recovered/Not Resolved]
  - Paraesthesia [Not Recovered/Not Resolved]
  - Arthralgia [Not Recovered/Not Resolved]
  - Deformity [Not Recovered/Not Resolved]
  - Gastrooesophageal reflux disease [Not Recovered/Not Resolved]
  - Arthropathy [Not Recovered/Not Resolved]
  - Skin tightness [Not Recovered/Not Resolved]
  - Dysphagia [Not Recovered/Not Resolved]
  - Skin fragility [Not Recovered/Not Resolved]
  - Mobility decreased [Not Recovered/Not Resolved]
  - Feeling abnormal [Not Recovered/Not Resolved]
  - Dyspepsia [Not Recovered/Not Resolved]
  - Sensory disturbance [Not Recovered/Not Resolved]

NARRATIVE: CASE EVENT DATE: 20051129
